FAERS Safety Report 11879797 (Version 1)
Quarter: 2015Q4

REPORT INFORMATION
  Report Type: Report from Study
  Country: US (occurrence: US)
  Receive Date: 20151230
  Receipt Date: 20151230
  Transmission Date: 20160305
  Serious: Yes (Other)
  Sender: FDA-Public Use
  Company Number: US-ABBVIE-15P-163-1527524-00

PATIENT
  Sex: Male

DRUGS (1)
  1. VIEKIRA PAK [Suspect]
     Active Substance: DASABUVIR\OMBITASVIR\PARITAPREVIR\RITONAVIR
     Indication: CHRONIC HEPATITIS C
     Dosage: 12.5MG/75MG/50MG/ 2 TABLETS IN AM, DASABUVIR TABLET 250MG
     Route: 048
     Dates: start: 20151106

REACTIONS (6)
  - Night sweats [Unknown]
  - Dry mouth [Unknown]
  - Anxiety [Unknown]
  - Seizure [Unknown]
  - Headache [Unknown]
  - Insomnia [Unknown]
